FAERS Safety Report 25625566 (Version 1)
Quarter: 2025Q3

REPORT INFORMATION
  Report Type: Spontaneous
  Country: JP (occurrence: JP)
  Receive Date: 20250731
  Receipt Date: 20250731
  Transmission Date: 20251020
  Serious: Yes (Other)
  Sender: BAXTER
  Company Number: JP-BAXTER-2025BAX019030

PATIENT
  Age: 60 Year
  Sex: Female

DRUGS (1)
  1. CYCLOPHOSPHAMIDE [Suspect]
     Active Substance: CYCLOPHOSPHAMIDE
     Dosage: 930 MG, QD
     Route: 065

REACTIONS (1)
  - Urinary retention [Unknown]
